FAERS Safety Report 8981900 (Version 1)
Quarter: 2012Q4

REPORT INFORMATION
  Report Type: 
  Country: SI (occurrence: SI)
  Receive Date: 20121223
  Receipt Date: 20121223
  Transmission Date: 20130627
  Serious: Yes (Other)
  Sender: FDA-Public Use
  Company Number: SI-ABBOTT-12P-261-1023612-00

PATIENT
  Age: 31 Year
  Sex: Female
  Weight: 96 kg

DRUGS (5)
  1. HUMIRA [Suspect]
     Indication: PSORIASIS
     Dates: start: 20120110
  2. HUMIRA [Suspect]
     Indication: PSORIATIC ARTHROPATHY
  3. METHOTREXATE [Concomitant]
     Indication: PSORIATIC ARTHROPATHY
     Dosage: 6 tablets per week
     Dates: start: 20121024
  4. CIPRALEX [Concomitant]
     Indication: DEPRESSION
     Route: 048
  5. MIRZATEN [Concomitant]
     Indication: DEPRESSION
     Route: 048

REACTIONS (1)
  - Depression suicidal [Recovering/Resolving]
